FAERS Safety Report 8911260 (Version 1)
Quarter: 2012Q4

REPORT INFORMATION
  Report Type: 
  Country: US (occurrence: US)
  Receive Date: 20121116
  Receipt Date: 20121116
  Transmission Date: 20130627
  Serious: No
  Sender: FDA-Public Use
  Company Number: US-GLAXOSMITHKLINE-A0993903A

PATIENT
  Age: 55 Year
  Sex: Male

DRUGS (3)
  1. VOTRIENT [Suspect]
     Indication: PRODUCT USED FOR UNKNOWN INDICATION
     Dosage: 800MG Per day
     Route: 048
  2. ENSURE [Concomitant]
  3. ACETAMINOPHEN [Concomitant]

REACTIONS (3)
  - Diarrhoea [Unknown]
  - Fatigue [Unknown]
  - Therapeutic response decreased [Unknown]
